FAERS Safety Report 4515182-0 (Version None)
Quarter: 2004Q4

REPORT INFORMATION
  Report Type: 
  Country: None (occurrence: None)
  Receive Date: 20041201
  Receipt Date: 20041122
  Transmission Date: 20050328
  Serious: Yes (Hospitalization)
  Sender: FDA-Public Use
  Company Number: 103

PATIENT
  Age: 67 Year
  Sex: Male

DRUGS (6)
  1. MELPHALAN [Suspect]
     Indication: MULTIPLE MYELOMA
     Route: 042
     Dates: start: 20040125
  2. THALIDOMIDE [Suspect]
     Indication: MULTIPLE MYELOMA
     Dates: start: 20030908, end: 20040123
  3. PAXIL [Concomitant]
  4. PROTONIX [Concomitant]
  5. SYNTHROID [Concomitant]
  6. DETROL LA [Concomitant]

REACTIONS (7)
  - ABDOMINAL PAIN LOWER [None]
  - CYSTITIS NONINFECTIVE [None]
  - ESCHERICHIA BACTERAEMIA [None]
  - ESCHERICHIA INFECTION [None]
  - PERIRECTAL ABSCESS [None]
  - PYREXIA [None]
  - RENAL HAEMORRHAGE [None]
